FAERS Safety Report 19423335 (Version 1)
Quarter: 2021Q2

REPORT INFORMATION
  Report Type: Spontaneous
  Country: US (occurrence: US)
  Receive Date: 20210616
  Receipt Date: 20210616
  Transmission Date: 20210717
  Serious: No
  Sender: FDA-Public Use
  Company Number: US-JNJFOC-20210629049

PATIENT
  Sex: Male
  Weight: 95.34 kg

DRUGS (7)
  1. SILODOSIN. [Concomitant]
     Active Substance: SILODOSIN
     Dosage: GENERIC OF RAPAFLO
  2. FENOFIBRATE. [Concomitant]
     Active Substance: FENOFIBRATE
     Indication: PRODUCT USED FOR UNKNOWN INDICATION
  3. XARELTO [Suspect]
     Active Substance: RIVAROXABAN
     Indication: ATRIAL FIBRILLATION
     Route: 048
  4. PANTOPRAZOLE [Concomitant]
     Active Substance: PANTOPRAZOLE
     Indication: PRODUCT USED FOR UNKNOWN INDICATION
  5. TADALAFIL. [Concomitant]
     Active Substance: TADALAFIL
     Indication: PRODUCT USED FOR UNKNOWN INDICATION
  6. ATORVASTATIN [Concomitant]
     Active Substance: ATORVASTATIN
     Indication: PRODUCT USED FOR UNKNOWN INDICATION
  7. OLMESARTAN [Concomitant]
     Active Substance: OLMESARTAN
     Dosage: GENERIC OF BENICAR

REACTIONS (2)
  - Diarrhoea [Unknown]
  - Feeling abnormal [Unknown]
